FAERS Safety Report 16924017 (Version 7)
Quarter: 2020Q1

REPORT INFORMATION
  Report Type: Spontaneous
  Country: BR (occurrence: BR)
  Receive Date: 20191016
  Receipt Date: 20200204
  Transmission Date: 20200409
  Serious: Yes (Life-Threatening, Other)
  Sender: FDA-Public Use
  Company Number: PHHY2019BR191050

PATIENT
  Sex: Female
  Weight: 65 kg

DRUGS (21)
  1. CLENIL PULVINAL [Suspect]
     Active Substance: BECLOMETHASONE DIPROPIONATE
     Indication: ASTHMA
     Dosage: UNK
     Route: 065
     Dates: start: 2018
  2. ASPIRIN. [Concomitant]
     Active Substance: ASPIRIN
     Indication: HEADACHE
     Route: 065
  3. SERETIDE [Concomitant]
     Active Substance: FLUTICASONE PROPIONATE\SALMETEROL XINAFOATE
     Indication: PRODUCT USED FOR UNKNOWN INDICATION
     Dosage: UNK
     Route: 065
     Dates: start: 2010, end: 2010
  4. FOSTAIR [Concomitant]
     Active Substance: BECLOMETHASONE\FORMOTEROL
     Indication: PRODUCT USED FOR UNKNOWN INDICATION
     Dosage: UNK
     Route: 065
     Dates: start: 201802, end: 201802
  5. ALENIA (BUDESONIDE\FORMOTEROL FUMARATE) [Suspect]
     Active Substance: BUDESONIDE\FORMOTEROL FUMARATE
     Indication: PRODUCT USED FOR UNKNOWN INDICATION
     Dosage: UNK
     Route: 065
     Dates: start: 2009, end: 2009
  6. BECLOMETHASONE DIPROPIONATE [Suspect]
     Active Substance: BECLOMETHASONE DIPROPIONATE
     Indication: PRODUCT USED FOR UNKNOWN INDICATION
     Dosage: UNK
     Route: 065
  7. MIFLONIDE [Suspect]
     Active Substance: BUDESONIDE
     Indication: PRODUCT USED FOR UNKNOWN INDICATION
     Dosage: UNK
     Route: 065
  8. CLENIL [Suspect]
     Active Substance: BECLOMETHASONE DIPROPIONATE
     Indication: PRODUCT USED FOR UNKNOWN INDICATION
     Dosage: UNK
     Route: 065
  9. MIFLASONE [Interacting]
     Active Substance: BECLOMETHASONE DIPROPIONATE
     Dosage: 400 UG, BID (60 CS)
     Route: 065
  10. FLUTICASONE. [Interacting]
     Active Substance: FLUTICASONE
     Indication: PRODUCT USED FOR UNKNOWN INDICATION
     Dosage: UNK
     Route: 065
  11. FLIXOTIDE [Suspect]
     Active Substance: FLUTICASONE PROPIONATE
     Dosage: 200 UNK
     Route: 005
  12. PLASIL [Suspect]
     Active Substance: METOCLOPRAMIDE HYDROCHLORIDE
     Indication: PRODUCT USED FOR UNKNOWN INDICATION
     Dosage: UNK
     Route: 065
  13. AZITHROMYCIN ANHYDROUS. [Suspect]
     Active Substance: AZITHROMYCIN ANHYDROUS
     Indication: PRODUCT USED FOR UNKNOWN INDICATION
     Dosage: UNK
     Route: 065
  14. ATROVENT [Concomitant]
     Active Substance: IPRATROPIUM BROMIDE
     Indication: ASTHMA
     Dosage: UNK
     Route: 065
  15. MIFLASONE [Interacting]
     Active Substance: BECLOMETHASONE DIPROPIONATE
     Indication: ASTHMA
     Dosage: 200 UG, UNK (60 CS) (1-3 TIMES A DAY)
     Route: 065
     Dates: start: 201802
  16. MIFLASONE [Interacting]
     Active Substance: BECLOMETHASONE DIPROPIONATE
     Dosage: 50 UG
     Route: 065
  17. AEROCORT [Interacting]
     Active Substance: BECLOMETHASONE DIPROPIONATE\LEVALBUTEROL SULFATE
     Indication: PRODUCT USED FOR UNKNOWN INDICATION
     Dosage: UNK
     Route: 065
  18. FLIXOTIDE [Suspect]
     Active Substance: FLUTICASONE PROPIONATE
     Indication: ASTHMA
     Dosage: 50 UG
     Route: 005
     Dates: start: 201908, end: 201908
  19. RILAN [CROMOGLICATE SODIUM] [Suspect]
     Active Substance: CROMOLYN SODIUM
     Indication: PRODUCT USED FOR UNKNOWN INDICATION
     Dosage: UNK
     Route: 065
  20. BECLOMETASONE PROPIONATE [Concomitant]
     Indication: PRODUCT USED FOR UNKNOWN INDICATION
     Route: 065
  21. ALVESCO [Concomitant]
     Active Substance: CICLESONIDE
     Indication: PRODUCT USED FOR UNKNOWN INDICATION
     Dosage: UNK (10 YEARS AGO)
     Route: 065

REACTIONS (44)
  - Renal disorder [Recovering/Resolving]
  - Reflux gastritis [Unknown]
  - Bronchitis [Unknown]
  - Lung disorder [Unknown]
  - Musculoskeletal discomfort [Unknown]
  - Feeling abnormal [Unknown]
  - Tinnitus [Unknown]
  - Pneumonitis [Unknown]
  - Urinary tract infection [Unknown]
  - Pain [Unknown]
  - Agitation [Unknown]
  - Muscle spasms [Recovering/Resolving]
  - Hypersensitivity pneumonitis [Unknown]
  - Fatigue [Recovering/Resolving]
  - Cough [Unknown]
  - Oropharyngeal discomfort [Recovering/Resolving]
  - Allergy to chemicals [Unknown]
  - Musculoskeletal stiffness [Unknown]
  - Anxiety [Unknown]
  - Depression [Unknown]
  - Gastric disorder [Unknown]
  - Nervous system disorder [Unknown]
  - Drug intolerance [Unknown]
  - Drug hypersensitivity [Unknown]
  - Abdominal discomfort [Recovering/Resolving]
  - Cardiovascular disorder [Recovering/Resolving]
  - Dysphagia [Recovering/Resolving]
  - Asthmatic crisis [Unknown]
  - Extrapyramidal disorder [Recovering/Resolving]
  - Muscle disorder [Unknown]
  - Oropharyngeal pain [Unknown]
  - Influenza [Unknown]
  - Muscular weakness [Unknown]
  - Collateral circulation [Unknown]
  - Food poisoning [Unknown]
  - Asthma [Unknown]
  - Headache [Recovered/Resolved]
  - Sinusitis [Unknown]
  - Wheezing [Unknown]
  - Malaise [Unknown]
  - Weight increased [Unknown]
  - Constipation [Unknown]
  - Myalgia [Recovering/Resolving]
  - Blood pressure increased [Not Recovered/Not Resolved]
